FAERS Safety Report 8036745-4 (Version None)
Quarter: 2012Q1

REPORT INFORMATION
  Report Type: 
  Country: None (occurrence: None)
  Receive Date: 20120111
  Receipt Date: 20120104
  Transmission Date: 20120608
  Serious: Yes (Hospitalization)
  Sender: FDA-Public Use
  Company Number: GB-B.I. PHARMACEUTICALS,INC./RIDGEFIELD-2012-UK-00014UK

PATIENT
  Age: 79 Year
  Sex: Female

DRUGS (1)
  1. TRAJENTA [Suspect]

REACTIONS (1)
  - RENAL IMPAIRMENT [None]
